FAERS Safety Report 21304437 (Version 1)
Quarter: 2022Q3

REPORT INFORMATION
  Report Type: Spontaneous
  Country: US (occurrence: None)
  Receive Date: 20220907
  Receipt Date: 20220907
  Transmission Date: 20221027
  Serious: No
  Sender: FDA-Public Use
  Company Number: US-ARIS GLOBAL-202108-1381

PATIENT
  Age: 81 Year
  Sex: Female

DRUGS (11)
  1. OXERVATE [Suspect]
     Active Substance: CENEGERMIN-BKBJ
     Indication: Neurotrophic keratopathy
     Route: 047
     Dates: start: 20210804
  2. OXERVATE [Suspect]
     Active Substance: CENEGERMIN-BKBJ
     Indication: Hypoaesthesia eye
  3. TRAMADOL HCL [Concomitant]
     Active Substance: TRAMADOL HYDROCHLORIDE
  4. PREGABALIN [Concomitant]
     Active Substance: PREGABALIN
  5. OXYCODONE w/ACETAMINOPHEN [Concomitant]
  6. MELOXICAM [Concomitant]
     Active Substance: MELOXICAM
  7. GABAPENTIN [Concomitant]
     Active Substance: GABAPENTIN
  8. CARVEDILOL [Concomitant]
     Active Substance: CARVEDILOL
  9. CARVEDILOL [Concomitant]
     Active Substance: CARVEDILOL
  10. PRASUGREL HYDROCHLORIDE [Concomitant]
     Active Substance: PRASUGREL HYDROCHLORIDE
  11. EZETIMIBE [Concomitant]
     Active Substance: EZETIMIBE

REACTIONS (3)
  - Lacrimation increased [Unknown]
  - Eye pain [Unknown]
  - Foreign body sensation in eyes [Unknown]
